FAERS Safety Report 11437061 (Version 1)
Quarter: 2015Q3

REPORT INFORMATION
  Report Type: Spontaneous
  Country: US (occurrence: US)
  Receive Date: 20150821
  Receipt Date: 20150821
  Transmission Date: 20151125
  Serious: No
  Sender: FDA-Public Use
  Company Number: US-ELI_LILLY_AND_COMPANY-US200702005650

PATIENT
  Sex: Female

DRUGS (1)
  1. CYMBALTA [Suspect]
     Active Substance: DULOXETINE HYDROCHLORIDE

REACTIONS (18)
  - Weight increased [Unknown]
  - Pollakiuria [Unknown]
  - Swollen tongue [Unknown]
  - Abdominal pain [Unknown]
  - Activities of daily living impaired [Unknown]
  - Influenza like illness [Unknown]
  - Arthralgia [Unknown]
  - Erythema [Unknown]
  - Muscular weakness [Unknown]
  - Libido increased [Unknown]
  - Hip surgery [Unknown]
  - Nausea [Unknown]
  - Urinary incontinence [Unknown]
  - Drug ineffective [Unknown]
  - Headache [Unknown]
  - Melanocytic naevus [Unknown]
  - Hot flush [Unknown]
  - Alopecia [Unknown]
